FAERS Safety Report 9299354 (Version 3)
Quarter: 2013Q3

REPORT INFORMATION
  Report Type: Spontaneous
  Country: US (occurrence: US)
  Receive Date: 20130520
  Receipt Date: 20130820
  Transmission Date: 20140515
  Serious: No
  Sender: FDA-Public Use
  Company Number: US-009507513-1305USA011754

PATIENT
  Age: 79 Year
  Sex: Female
  Weight: 64.4 kg

DRUGS (5)
  1. CLARITIN REDITABS [Suspect]
     Indication: PRODUCT USED FOR UNKNOWN INDICATION
     Dosage: 5 MG, ONCE
     Route: 048
     Dates: start: 20130501
  2. CLARITIN REDITABS [Suspect]
     Indication: MEDICAL OBSERVATION
  3. HYDROCHLOROTHIAZIDE [Concomitant]
     Indication: HYPERTENSION
     Dosage: UNK, UNKNOWN
  4. CENTRUM (PERFOMANCE (ASIAN GINSENG (+) GINKGO (+) MINERALS (UNSPECIFIE [Concomitant]
     Indication: PRODUCT USED FOR UNKNOWN INDICATION
     Dosage: UNK, UNKNOWN
  5. ASPIRIN [Concomitant]
     Indication: ARTHRITIS
     Dosage: UNK, UNKNOWN

REACTIONS (3)
  - Oesophageal pain [Recovered/Resolved]
  - Throat irritation [Recovered/Resolved]
  - Wrong technique in drug usage process [Unknown]
